FAERS Safety Report 6913133-2 (Version None)
Quarter: 2010Q3

REPORT INFORMATION
  Report Type: 
  Country: None (occurrence: None)
  Receive Date: 20100806
  Receipt Date: 20090824
  Transmission Date: 20110219
  Serious: No
  Sender: FDA-Public Use
  Company Number: US-PFIZER INC-2009219594

PATIENT
  Sex: Female
  Weight: 83 kg

DRUGS (9)
  1. DILANTIN-125 [Suspect]
     Indication: CONVULSION
     Dosage: UNK
     Route: 048
  2. DILANTIN [Suspect]
     Indication: CONVULSION
     Dosage: UNK
  3. SYNTHROID [Suspect]
     Dosage: 0.15 UG, 1X/DAY
  4. LOVASTATIN [Suspect]
     Dosage: 20 MG, 1X/DAY
  5. XYZAL [Suspect]
     Dosage: 5 MG, 2X/DAY
  6. LYRICA [Concomitant]
     Dosage: UNK
  7. PRIMIDONE [Concomitant]
     Dosage: UNK
  8. FOSAMAX [Concomitant]
     Dosage: UNK
  9. ACETYLSALICYLIC ACID [Concomitant]
     Dosage: UNK

REACTIONS (3)
  - ANTICONVULSANT DRUG LEVEL DECREASED [None]
  - NEUROPATHY PERIPHERAL [None]
  - URTICARIA [None]
